FAERS Safety Report 16265228 (Version 3)
Quarter: 2019Q2

REPORT INFORMATION
  Report Type: Report from Study
  Country: NL (occurrence: NL)
  Receive Date: 20190502
  Receipt Date: 20190626
  Transmission Date: 20190711
  Serious: Yes (Other)
  Sender: FDA-Public Use
  Company Number: NL-AMGEN-NLDSL2019066683

PATIENT
  Age: 70 Year
  Sex: Female

DRUGS (10)
  1. TRIAMCINOLONACETONIDE [Concomitant]
     Active Substance: TRIAMCINOLONE ACETONIDE
     Dosage: UNK, QD
  2. LETROZOL [Concomitant]
     Active Substance: LETROZOLE
     Dosage: 2.5 MILLIGRAM, QD, 1T
  3. MIZOLASTINE [Concomitant]
     Active Substance: MIZOLASTINE
     Dosage: MGA 10 MILLIGRAM, QD, 1T
  4. LIDOCAINE. [Concomitant]
     Active Substance: LIDOCAINE
     Dosage: OINTMENT, QD
     Route: 054
  5. OMEPRAZOL [Concomitant]
     Active Substance: OMEPRAZOLE
     Dosage: 20 MILLIGRAM, MSR ,1D1T
  6. TRAVOPROST. [Concomitant]
     Active Substance: TRAVOPROST
     Dosage: EYEDROPS 40UG/ML FL 2,5ML, 1D1DR
  7. XGEVA [Suspect]
     Active Substance: DENOSUMAB
     Dosage: 120 MILLIGRAM, Q4WK, 70MG/ML FLACON 1,7ML /
     Route: 065
  8. CALCIUM CARBONATE W/COLECALCIFEROL [Concomitant]
     Active Substance: CALCIUM CARBONATE\CHOLECALCIFEROL
     Dosage: 1.25 800IE (500MG CA),1D1T
  9. ROSUVASTATINE [Concomitant]
     Active Substance: ROSUVASTATIN
     Dosage: 20 MILLIGRAM, QD, FO (AS CA-SALT), 1D1T
  10. XGEVA [Suspect]
     Active Substance: DENOSUMAB
     Indication: PROPHYLAXIS
     Dosage: 120 MILLIGRAM, Q4WK, 70MG/ML FLACON 1.7ML
     Route: 065
     Dates: start: 20190423

REACTIONS (1)
  - Cancer pain [Unknown]

NARRATIVE: CASE EVENT DATE: 201903
